FAERS Safety Report 22197818 (Version 1)
Quarter: 2023Q2

REPORT INFORMATION
  Report Type: Spontaneous
  Country: IT (occurrence: IT)
  Receive Date: 20230411
  Receipt Date: 20230411
  Transmission Date: 20230721
  Serious: Yes (Other)
  Sender: FDA-Public Use
  Company Number: None

PATIENT
  Age: 56 Year
  Sex: Female

DRUGS (6)
  1. METHOTREXATE (METHOTREXATE SODIUM) [Suspect]
     Active Substance: METHOTREXATE SODIUM
     Indication: Non-Hodgkin^s lymphoma
     Dosage: 500 MG IN 100 ML OF SALINE IN 15 MIN AND 1200 MG IN 500 ML OF SALINE IN 180 MIN
     Route: 065
     Dates: start: 20220823, end: 20220823
  2. VINCRISTINE [Suspect]
     Active Substance: VINCRISTINE
     Indication: Non-Hodgkin^s lymphoma
     Dosage: 2 MG ON DAY 1 OF EACH 21-DAY TREATMENT CYCLE
     Route: 065
     Dates: start: 20211105, end: 20220823
  3. DOXORUBICIN [Suspect]
     Active Substance: DOXORUBICIN
     Indication: Non-Hodgkin^s lymphoma
     Dosage: 50 MG/M2 ON DAY 1 OF EACH 21-DAY CYCLE
     Route: 065
     Dates: start: 20211105, end: 20220823
  4. CYCLOPHOSPHAMIDE [Suspect]
     Active Substance: CYCLOPHOSPHAMIDE
     Indication: Non-Hodgkin^s lymphoma
     Dosage: 750 MG/M2 ON DAY 1 OF EACH 21-DAY CYCLE
     Route: 065
     Dates: start: 20211105, end: 20220823
  5. RITUXIMAB [Suspect]
     Active Substance: RITUXIMAB
     Indication: Non-Hodgkin^s lymphoma
     Dosage: 375 MG/M2 ON DAY 1 OF EACH TREATMENT CYCLE
     Route: 065
     Dates: start: 20211111, end: 20220823
  6. PREDNISONE [Suspect]
     Active Substance: PREDNISONE
     Indication: Non-Hodgkin^s lymphoma
     Dosage: 100 MG DAYS 1-5 OF EACH 21-DAY CYCLE
     Route: 065
     Dates: start: 20211105, end: 20220823

REACTIONS (1)
  - Acute myeloid leukaemia [Not Recovered/Not Resolved]

NARRATIVE: CASE EVENT DATE: 20230308
